FAERS Safety Report 10800466 (Version 1)
Quarter: 2015Q1

REPORT INFORMATION
  Report Type: Spontaneous
  Country: US (occurrence: US)
  Receive Date: 20150216
  Receipt Date: 20150216
  Transmission Date: 20150721
  Serious: No
  Sender: FDA-Public Use
  Company Number: US-ALLERGAN-1409191US

PATIENT
  Age: 64 Year
  Sex: Female

DRUGS (7)
  1. EPIPEN [Concomitant]
     Active Substance: EPINEPHRINE
     Indication: FOOD ALLERGY
     Dosage: UNK UNK, PRN
  2. RESTASIS [Suspect]
     Active Substance: CYCLOSPORINE
     Indication: DRY EYE
     Dosage: 2 GTT, BID
     Route: 047
  3. REFRESH TEARS [Suspect]
     Active Substance: CARBOXYMETHYLCELLULOSE SODIUM
     Indication: DRY EYE
     Dosage: 2 GTT, Q1HR
     Route: 047
  4. ZANTAC [Concomitant]
     Active Substance: RANITIDINE HYDROCHLORIDE
     Indication: GASTRIC DISORDER
     Dosage: UNK
  5. FLONASE [Concomitant]
     Active Substance: FLUTICASONE PROPIONATE
     Indication: CHRONIC SINUSITIS
     Dosage: UNK
  6. ZYRTEC [Concomitant]
     Active Substance: CETIRIZINE HYDROCHLORIDE
     Indication: CHRONIC SINUSITIS
     Dosage: UNK
  7. HORMONES [Concomitant]
     Active Substance: UNSPECIFIED INGREDIENT
     Indication: HOT FLUSH
     Dosage: UNK

REACTIONS (4)
  - Incorrect product storage [Unknown]
  - Drug ineffective [Unknown]
  - Vision blurred [Unknown]
  - Visual impairment [Unknown]

NARRATIVE: CASE EVENT DATE: 20140503
